FAERS Safety Report 9807698 (Version 1)
Quarter: 2014Q1

REPORT INFORMATION
  Report Type: Spontaneous
  Country: US (occurrence: US)
  Receive Date: 20140110
  Receipt Date: 20140110
  Transmission Date: 20141002
  Serious: Yes (Other)
  Sender: FDA-Public Use
  Company Number: US-ALEXION-A201304345

PATIENT
  Age: 36 Year
  Sex: Male

DRUGS (1)
  1. SOLIRIS 300MG [Suspect]
     Indication: COMPLEMENT FACTOR ABNORMAL
     Route: 042

REACTIONS (1)
  - Blood creatinine increased [Recovered/Resolved]
